FAERS Safety Report 8489660-6 (Version None)
Quarter: 2012Q3

REPORT INFORMATION
  Report Type: 
  Country: None (occurrence: None)
  Receive Date: 20120705
  Receipt Date: 20120626
  Transmission Date: 20120928
  Serious: Yes (Other)
  Sender: FDA-Public Use
  Company Number: FR-ASTRAZENECA-2012SE22856

PATIENT
  Age: 19 Year
  Sex: Male

DRUGS (2)
  1. QUETIAPINE FUMARATE [Suspect]
     Indication: ABNORMAL BEHAVIOUR
     Route: 048
     Dates: start: 20120310
  2. ESCITALOPRAM [Concomitant]
     Route: 048

REACTIONS (1)
  - FALSE POSITIVE INVESTIGATION RESULT [None]
